FAERS Safety Report 18597107 (Version 5)
Quarter: 2021Q1

REPORT INFORMATION
  Report Type: Report from Study
  Country: US (occurrence: US)
  Receive Date: 20201209
  Receipt Date: 20210330
  Transmission Date: 20210419
  Serious: No
  Sender: FDA-Public Use
  Company Number: NVSC2020US327602

PATIENT
  Sex: Female

DRUGS (1)
  1. COSENTYX [Suspect]
     Active Substance: SECUKINUMAB
     Indication: PSORIATIC ARTHROPATHY
     Dosage: UNK UNK, Q4W
     Route: 058

REACTIONS (6)
  - Back pain [Unknown]
  - Drug ineffective [Unknown]
  - Diarrhoea [Unknown]
  - Dry eye [Unknown]
  - Eye inflammation [Unknown]
  - Arthralgia [Unknown]
